FAERS Safety Report 4369246-5 (Version None)
Quarter: 2004Q2

REPORT INFORMATION
  Report Type: 
  Country: None (occurrence: None)
  Receive Date: 20040603
  Receipt Date: 20040112
  Transmission Date: 20050107
  Serious: No
  Sender: FDA-Public Use
  Company Number: US-GLAXOSMITHKLINE-A0492584A

PATIENT
  Age: 53 Year
  Sex: Female

DRUGS (1)
  1. AUGMENTIN [Suspect]
     Indication: SINUSITIS
     Dosage: 2TAB TWICE PER DAY
     Route: 048
     Dates: start: 20040104, end: 20040108

REACTIONS (5)
  - DRUG INEFFECTIVE [None]
  - ILL-DEFINED DISORDER [None]
  - NAUSEA [None]
  - PYREXIA [None]
  - RHINORRHOEA [None]
